FAERS Safety Report 21774683 (Version 1)
Quarter: 2022Q4

REPORT INFORMATION
  Report Type: Spontaneous
  Country: FR (occurrence: FR)
  Receive Date: 20221224
  Receipt Date: 20221224
  Transmission Date: 20230112
  Serious: Yes (Death)
  Sender: FDA-Public Use
  Company Number: None

PATIENT
  Age: 56 Year
  Sex: Male
  Weight: 69 kg

DRUGS (8)
  1. PHLOROGLUCINOL [Suspect]
     Active Substance: PHLOROGLUCINOL
     Indication: Abdominal pain
     Dosage: 1 TAB X 3 PER DAY IF NEEDED, UNIT DOSE : 3 DOSAGE FORMS, FREQUENCY TIME : 1 DAYS
     Route: 065
  2. AMISULPRIDE [Suspect]
     Active Substance: AMISULPRIDE
     Indication: Schizophrenia
     Dosage: 150 MILLIGRAM DAILY; 50 MG IN THE MORNING AND 100 MG IN THE EVENING, FREQUENCY TIME : 1 DAYS
     Route: 065
  3. PANTOPRAZOLE [Suspect]
     Active Substance: PANTOPRAZOLE
     Indication: Prophylaxis against gastrointestinal ulcer
     Dosage: 20 MILLIGRAM DAILY; 20MG AT BEDTIME
     Route: 065
  4. DOMPERIDONE [Suspect]
     Active Substance: DOMPERIDONE
     Indication: Prophylaxis of nausea and vomiting
     Dosage: 10 MILLIGRAM DAILY; 10MG IN THE MORNING
     Route: 065
  5. LOXAPINE [Suspect]
     Active Substance: LOXAPINE
     Indication: Schizophrenia
     Dosage: 4 DOSAGE FORMS DAILY; 1 IN THE MORNING, 2 IN THE EVENING AND 1 AT BEDTIME, FORM STRENGTH : 50 MG, FR
     Route: 065
  6. PALIPERIDONE PALMITATE [Suspect]
     Active Substance: PALIPERIDONE PALMITATE
     Indication: Schizophrenia
     Dosage: 150 MG IN THE MORNING EVERY 28 DAYS,FORM STRENGTH: 150 MG,PROLONGED-RELEASE SUSPENSION FOR INJECTION
     Route: 065
  7. TRIHEXYPHENIDYL [Suspect]
     Active Substance: TRIHEXYPHENIDYL
     Indication: Product used for unknown indication
     Dosage: 1 DOSAGE FORMS DAILY; 1 IN THE MORNING, FORM STRENGTH : 5 MG
     Route: 065
  8. GAVISCON [Suspect]
     Active Substance: ALUMINUM HYDROXIDE\MAGNESIUM CARBONATE
     Indication: Gastrooesophageal reflux prophylaxis
     Dosage: 3 DOSAGE FORMS DAILY; 1 MORNING, NOON AND EVENING, ORAL SUSPENSION IN SACHET, FREQUENCY TIME : 1 DAY
     Route: 065

REACTIONS (1)
  - Choking [Fatal]

NARRATIVE: CASE EVENT DATE: 20220919
